FAERS Safety Report 4608770-4 (Version None)
Quarter: 2005Q1

REPORT INFORMATION
  Report Type: 
  Country: None (occurrence: None)
  Receive Date: 20050309
  Receipt Date: 20050217
  Transmission Date: 20050727
  Serious: Yes (Death)
  Sender: FDA-Public Use
  Company Number: FR_050205864

PATIENT
  Age: 46 Year
  Sex: Male
  Weight: 61 kg

DRUGS (10)
  1. GEMZAR [Suspect]
     Indication: SMALL CELL LUNG CANCER STAGE UNSPECIFIED
     Dosage: 2000 MG OTHER
     Route: 050
     Dates: start: 20050105
  2. CISPLATIN [Concomitant]
  3. OMEPRAZOLE [Concomitant]
  4. ONDANSETRON HYDROCHLORIDE [Concomitant]
  5. LOVENOX [Concomitant]
  6. KETEK [Concomitant]
  7. SURBRONC (AMBROXOL HYDROCHLORIDE) [Concomitant]
  8. MEDROL [Concomitant]
  9. ETHYOL [Concomitant]
  10. PRIMPERAN ELIXIR [Concomitant]

REACTIONS (2)
  - HEPATIC FAILURE [None]
  - HEPATITIS CHOLESTATIC [None]
